FAERS Safety Report 8101019-X (Version None)
Quarter: 2012Q1

REPORT INFORMATION
  Report Type: 
  Country: None (occurrence: None)
  Receive Date: 20120131
  Receipt Date: 20120129
  Transmission Date: 20120608
  Serious: No
  Sender: FDA-Public Use
  Company Number: US-PFIZER INC-2012024207

PATIENT
  Sex: Female
  Weight: 86.168 kg

DRUGS (7)
  1. PRAVASTATIN [Suspect]
     Dosage: UNK
  2. CARISOPRODOL [Concomitant]
     Indication: MUSCLE SPASMS
     Dosage: UNK
  3. HYDROCODONE [Concomitant]
     Indication: PAIN
     Dosage: 10/325 MG, AS NEEDED
  4. INSULIN [Concomitant]
     Indication: DIABETIC NEUROPATHY
     Dosage: UNK
  5. CHANTIX [Suspect]
     Indication: SMOKING CESSATION THERAPY
     Dosage: 0.5 MG, 2X/DAY
     Route: 048
     Dates: start: 20120107
  6. TEMAZEPAM [Suspect]
     Indication: SLEEP DISORDER
     Dosage: UNK
     Dates: start: 20120101
  7. POTASSIUM [Concomitant]
     Dosage: UNK

REACTIONS (5)
  - NAUSEA [None]
  - HANGOVER [None]
  - STRESS [None]
  - UNEVALUABLE EVENT [None]
  - INSOMNIA [None]
